FAERS Safety Report 8900746 (Version 2)
Quarter: 2012Q4

REPORT INFORMATION
  Report Type: 
  Country: JP (occurrence: JP)
  Receive Date: 20121109
  Receipt Date: 20121127
  Transmission Date: 20130627
  Serious: Yes (Other)
  Sender: FDA-Public Use
  Company Number: JP-ASTELLAS-2012JP010444

PATIENT
  Age: 87 Year
  Sex: Female

DRUGS (3)
  1. BETANIS [Suspect]
     Indication: HYPERTONIC BLADDER
     Dosage: 50 mg, UID/QD
     Route: 048
     Dates: start: 20121024, end: 20121027
  2. EBRANTIL                           /00631801/ [Concomitant]
     Indication: NEUROGENIC BLADDER
     Dosage: 15 mg, bid
     Route: 048
     Dates: start: 20120907
  3. UBTEC [Concomitant]
     Indication: NEUROGENIC BLADDER
     Dosage: 5 mg, UID/QD
     Route: 048
     Dates: start: 20120907

REACTIONS (2)
  - Dysuria [Recovered/Resolved]
  - Urinary retention [Recovered/Resolved]
